FAERS Safety Report 24582399 (Version 2)
Quarter: 2024Q4

REPORT INFORMATION
  Report Type: Report from Study
  Country: IN (occurrence: IN)
  Receive Date: 20241106
  Receipt Date: 20241210
  Transmission Date: 20250115
  Serious: Yes (Other)
  Sender: CIPLA
  Company Number: IN-CIPLA LTD.-2024IN12269

PATIENT

DRUGS (3)
  1. METOPROLOL SUCCINATE [Suspect]
     Active Substance: METOPROLOL SUCCINATE
     Indication: Product used for unknown indication
     Dosage: 1 DOSE, 1 FREQUENCY (UNITS UNSPECIFIED)
     Route: 048
  2. PANTOMAG [Concomitant]
     Indication: Product used for unknown indication
     Dosage: STRENGTH: 40 MG
     Route: 065
  3. ROSUMAC GOLD [Concomitant]
     Indication: Product used for unknown indication
     Dosage: UNK, STRENGTH: 20 MG
     Route: 065

REACTIONS (4)
  - Myocardial infarction [Recovering/Resolving]
  - Hypersomnia [Recovering/Resolving]
  - Hepatic pain [Recovered/Resolved]
  - Hepatomegaly [Recovered/Resolved]

NARRATIVE: CASE EVENT DATE: 20220101
